FAERS Safety Report 9086434 (Version 1)
Quarter: 2013Q1

REPORT INFORMATION
  Report Type: Spontaneous
  Country: PT (occurrence: PT)
  Receive Date: 20130218
  Receipt Date: 20130218
  Transmission Date: 20140127
  Serious: Yes (Other)
  Sender: FDA-Public Use
  Company Number: PT-009507513-1302PRT007395

PATIENT
  Age: 35 Year
  Sex: Female

DRUGS (9)
  1. PUREGON [Suspect]
     Indication: OVULATION INDUCTION
     Dosage: 2ND CYCLE OF IUI WITH OI, 75 IU
  2. PUREGON [Suspect]
     Dosage: 1ST CYCLE WITH OI, 75 IU
  3. PUREGON [Suspect]
     Dosage: 2ND CYCLE WITH OI, 50 IU
  4. PUREGON [Suspect]
     Dosage: 1ST CYCLE OF IUI WITH OI, 75 IU
  5. ORGALUTRAN [Suspect]
     Indication: OVULATION INDUCTION
     Dosage: 2ND CYCLE OF IUI WITH OI
  6. ORGALUTRAN [Suspect]
     Dosage: 1ST CYCLE OF IUI WITH OI
  7. GONADOTROPIN, CHORIONIC [Suspect]
     Dosage: 5000 IU TO 11 DAYS
  8. GONADOTROPIN, CHORIONIC [Suspect]
     Dosage: 10000 IU TO 11 DAYS
  9. PROGESTERONE [Suspect]
     Dosage: 200 MG, BID
     Route: 067

REACTIONS (2)
  - Abortion spontaneous [Unknown]
  - Exposure during pregnancy [Recovered/Resolved]
